FAERS Safety Report 7491440-5 (Version None)
Quarter: 2011Q2

REPORT INFORMATION
  Report Type: 
  Country: None (occurrence: None)
  Receive Date: 20110519
  Receipt Date: 20110510
  Transmission Date: 20111010
  Serious: Yes (Other)
  Sender: FDA-Public Use
  Company Number: PHHY2011US35990

PATIENT
  Sex: Male

DRUGS (1)
  1. EXJADE [Suspect]
     Dosage: 2500 MG, QD
     Route: 048

REACTIONS (4)
  - DYSPNOEA [None]
  - PROTEINURIA [None]
  - CARDIAC FAILURE CONGESTIVE [None]
  - ANAEMIA [None]
